FAERS Safety Report 15368808 (Version 1)
Quarter: 2018Q3

REPORT INFORMATION
  Report Type: Spontaneous
  Country: FR (occurrence: FR)
  Receive Date: 20180911
  Receipt Date: 20180911
  Transmission Date: 20181010
  Serious: Yes (Hospitalization)
  Sender: FDA-Public Use
  Company Number: FR-TEVA-2018-FR-953315

PATIENT
  Age: 78 Year
  Sex: Female
  Weight: 84 kg

DRUGS (10)
  1. IZALGI [Concomitant]
     Active Substance: ACETAMINOPHEN\OPIUM
  2. DAKTARIN [Concomitant]
     Active Substance: MICONAZOLE NITRATE
  3. LAMALINE [Concomitant]
  4. JANUMET [Concomitant]
     Active Substance: METFORMIN HYDROCHLORIDE\SITAGLIPTIN PHOSPHATE
  5. ALLOPURINOL. [Concomitant]
     Active Substance: ALLOPURINOL
  6. AMOXICILLINE [Suspect]
     Active Substance: AMOXICILLIN
     Indication: PYELONEPHRITIS ACUTE
     Route: 048
     Dates: start: 20180718, end: 20180725
  7. METFORMINE [Concomitant]
     Active Substance: METFORMIN HYDROCHLORIDE
  8. CALTRATE [Concomitant]
     Active Substance: CALCIUM CARBONATE
  9. NOVOMIX [Concomitant]
     Active Substance: INSULIN ASPART
  10. ACICLOVIR [Concomitant]
     Active Substance: ACYCLOVIR

REACTIONS (2)
  - Diarrhoea [Recovered/Resolved]
  - Blood glucose abnormal [Recovered/Resolved]

NARRATIVE: CASE EVENT DATE: 201807
